FAERS Safety Report 4263676-8 (Version None)
Quarter: 2004Q1

REPORT INFORMATION
  Report Type: 
  Country: None (occurrence: None)
  Receive Date: 20040102
  Receipt Date: 20031216
  Transmission Date: 20041129
  Serious: Yes (Life-Threatening, Other)
  Sender: FDA-Public Use
  Company Number: USA031254896

PATIENT
  Age: 58 Year
  Sex: Male
  Weight: 73 kg

DRUGS (5)
  1. FORTEO [Suspect]
     Indication: BONE DISORDER
     Dates: start: 20031212, end: 20031214
  2. OXYCODONE HCL [Concomitant]
  3. PERCOCET [Concomitant]
  4. NEURONTIN [Concomitant]
  5. SOMA [Concomitant]

REACTIONS (13)
  - ASTHENIA [None]
  - CHILLS [None]
  - DYSKINESIA [None]
  - FATIGUE [None]
  - FEELING ABNORMAL [None]
  - FEELING COLD [None]
  - HEADACHE [None]
  - MUSCLE SPASMS [None]
  - NEURALGIA [None]
  - PAIN IN EXTREMITY [None]
  - SCIATICA [None]
  - SUICIDAL IDEATION [None]
  - TREMOR [None]
